FAERS Safety Report 16653047 (Version 2)
Quarter: 2019Q4

REPORT INFORMATION
  Report Type: Report from Study
  Country: US (occurrence: US)
  Receive Date: 20190731
  Receipt Date: 20191024
  Transmission Date: 20200122
  Serious: Yes (Hospitalization)
  Sender: FDA-Public Use
  Company Number: US-ACTELION-A-US2017-161007

PATIENT
  Age: 60 Year
  Sex: Female
  Weight: 86.62 kg

DRUGS (7)
  1. ADEMPAS [Concomitant]
     Active Substance: RIOCIGUAT
     Indication: PRODUCT USED FOR UNKNOWN INDICATION
     Route: 065
  2. WARFARIN [Concomitant]
     Active Substance: WARFARIN
  3. OPSUMIT [Suspect]
     Active Substance: MACITENTAN
     Dosage: UNK
     Route: 048
  4. FUROSEMIDE. [Suspect]
     Active Substance: FUROSEMIDE
     Indication: PRODUCT USED FOR UNKNOWN INDICATION
     Route: 065
  5. OPSUMIT [Suspect]
     Active Substance: MACITENTAN
     Indication: PULMONARY ARTERIAL HYPERTENSION
     Dosage: 10 MG, QD
     Route: 048
  6. REMODULIN [Suspect]
     Active Substance: TREPROSTINIL
     Indication: PRODUCT USED FOR UNKNOWN INDICATION
     Dosage: UNK
     Route: 065
     Dates: end: 201910
  7. ADCIRCA [Concomitant]
     Active Substance: TADALAFIL

REACTIONS (26)
  - Influenza like illness [Unknown]
  - Influenza [Unknown]
  - Bone pain [Unknown]
  - Headache [Unknown]
  - Catheter site swelling [Unknown]
  - Pain in extremity [Unknown]
  - Diarrhoea [Unknown]
  - Pyrexia [Unknown]
  - Dyspnoea [Unknown]
  - Pharyngitis streptococcal [Unknown]
  - Catheter site erythema [Not Recovered/Not Resolved]
  - Seasonal allergy [Unknown]
  - Hospitalisation [Not Recovered/Not Resolved]
  - Lung transplant [Unknown]
  - Fatigue [Unknown]
  - Cough [Unknown]
  - Dyspnoea exertional [Unknown]
  - Nausea [Unknown]
  - Device related infection [Unknown]
  - Peripheral swelling [Unknown]
  - Catheter site pain [Recovering/Resolving]
  - Unevaluable event [Unknown]
  - Malaise [Unknown]
  - Swelling [Unknown]
  - Gout [Recovered/Resolved]
  - Frequent bowel movements [Unknown]

NARRATIVE: CASE EVENT DATE: 20181222
